FAERS Safety Report 6680620-4 (Version None)
Quarter: 2010Q2

REPORT INFORMATION
  Report Type: 
  Country: None (occurrence: None)
  Receive Date: 20100414
  Receipt Date: 20100405
  Transmission Date: 20101027
  Serious: No
  Sender: FDA-Public Use
  Company Number: 2006BI006089

PATIENT
  Sex: Female
  Weight: 63 kg

DRUGS (3)
  1. TYSABRI [Suspect]
     Indication: MULTIPLE SCLEROSIS
     Route: 042
     Dates: start: 20050225, end: 20050225
  2. TYSABRI [Suspect]
     Route: 042
     Dates: start: 20080121, end: 20081024
  3. TYSABRI [Suspect]
     Route: 042
     Dates: start: 20090619, end: 20090814

REACTIONS (13)
  - ANXIETY DISORDER [None]
  - BALANCE DISORDER [None]
  - BIPOLAR I DISORDER [None]
  - COGNITIVE DISORDER [None]
  - EMOTIONAL DISORDER [None]
  - INSOMNIA [None]
  - MEMORY IMPAIRMENT [None]
  - MOOD SWINGS [None]
  - MULTIPLE SCLEROSIS [None]
  - MULTIPLE SCLEROSIS RELAPSE [None]
  - PHOTOSENSITIVITY REACTION [None]
  - TEMPERATURE INTOLERANCE [None]
  - VISUAL IMPAIRMENT [None]
